FAERS Safety Report 14223919 (Version 1)
Quarter: 2017Q4

REPORT INFORMATION
  Report Type: Spontaneous
  Country: US (occurrence: US)
  Receive Date: 20171126
  Receipt Date: 20171126
  Transmission Date: 20180321
  Serious: No
  Sender: FDA-Public Use
  Company Number: US-ASTRAZENECA-2017SF19632

PATIENT
  Age: 73 Year
  Sex: Female

DRUGS (3)
  1. MOTRIN [Concomitant]
     Active Substance: IBUPROFEN
     Indication: ARTHRITIS
  2. MOTRIN [Concomitant]
     Active Substance: IBUPROFEN
     Indication: HEADACHE
  3. NEXIUM 24HR [Suspect]
     Active Substance: ESOMEPRAZOLE MAGNESIUM
     Indication: GASTRIC DISORDER
     Dosage: 22.3 MG, UNK
     Route: 048
     Dates: start: 20171114

REACTIONS (3)
  - Diarrhoea [Unknown]
  - Product use in unapproved indication [Unknown]
  - Abdominal pain upper [Unknown]

NARRATIVE: CASE EVENT DATE: 20171114
